FAERS Safety Report 5255057-5 (Version None)
Quarter: 2007Q1

REPORT INFORMATION
  Report Type: 
  Country: None (occurrence: None)
  Receive Date: 20070301
  Receipt Date: 20070212
  Transmission Date: 20070707
  Serious: No
  Sender: FDA-Public Use
  Company Number: US-1160150

PATIENT
  Sex: Female

DRUGS (1)
  1. SYSTANE FREE LUBRICANT [Suspect]
     Dosage: PRN OPHTHALMIC
     Route: 047

REACTIONS (4)
  - KERATITIS BACTERIAL [None]
  - STAPHYLOCOCCAL INFECTION [None]
  - STREPTOCOCCAL INFECTION [None]
  - ULCERATIVE KERATITIS [None]
